FAERS Safety Report 19012425 (Version 1)
Quarter: 2021Q1

REPORT INFORMATION
  Report Type: Spontaneous
  Country: US (occurrence: US)
  Receive Date: 20210315
  Receipt Date: 20210315
  Transmission Date: 20210420
  Serious: Yes (Other)
  Sender: FDA-Public Use
  Company Number: US-JNJFOC-20210314697

PATIENT
  Age: 58 Year
  Sex: Female
  Weight: 89.89 kg

DRUGS (2)
  1. TOPAMAX [Suspect]
     Active Substance: TOPIRAMATE
     Indication: SEIZURE
     Route: 048
  2. TOPAMAX [Suspect]
     Active Substance: TOPIRAMATE
     Indication: MIGRAINE PROPHYLAXIS
     Route: 048

REACTIONS (4)
  - Visual impairment [Recovering/Resolving]
  - Gastrointestinal necrosis [Unknown]
  - Diarrhoea [Unknown]
  - Pupillary disorder [Unknown]
